FAERS Safety Report 9392375 (Version 2)
Quarter: 2013Q3

REPORT INFORMATION
  Report Type: Report from Study
  Country: DE (occurrence: DE)
  Receive Date: 20130710
  Receipt Date: 20130814
  Transmission Date: 20140515
  Serious: Yes (Hospitalization)
  Sender: FDA-Public Use
  Company Number: DE-BRISTOL-MYERS SQUIBB COMPANY-19082668

PATIENT
  Age: 57 Year
  Sex: Female
  Weight: 51 kg

DRUGS (9)
  1. ERBITUX SOLN FOR INF [Suspect]
     Indication: COLORECTAL CANCER METASTATIC
     Dosage: 23MAY13-ONG 500MG/M2?10JUN:780MG
     Route: 042
     Dates: start: 20130506
  2. 5-FLUOROURACIL [Concomitant]
     Indication: COLORECTAL CANCER METASTATIC
     Dosage: 10JUN:940MG
     Route: 042
     Dates: start: 20130422
  3. FOLINIC ACID [Concomitant]
     Indication: COLORECTAL CANCER METASTATIC
     Dosage: 10JUN:310MG
     Route: 042
     Dates: start: 20130422
  4. OXALIPLATIN [Concomitant]
     Indication: COLORECTAL CANCER METASTATIC
     Dosage: 130MG
     Route: 042
     Dates: start: 20130422
  5. RANITIDINE [Concomitant]
     Indication: PREMEDICATION
     Route: 042
     Dates: start: 20130506, end: 20130523
  6. DIPHENHYDRAMINE [Concomitant]
     Indication: PREMEDICATION
     Route: 048
     Dates: start: 20130506, end: 20130523
  7. CALCIUM FOLINATE [Concomitant]
  8. CORTICOSTEROID [Concomitant]
     Route: 042
  9. GRANISETRON [Concomitant]
     Indication: PREMEDICATION
     Dates: start: 20130506, end: 20130523

REACTIONS (2)
  - Device related infection [Recovered/Resolved]
  - Endocarditis [Recovered/Resolved]
